FAERS Safety Report 6709644-5 (Version None)
Quarter: 2010Q2

REPORT INFORMATION
  Report Type: 
  Country: None (occurrence: None)
  Receive Date: 20100504
  Receipt Date: 20100417
  Transmission Date: 20101027
  Serious: Yes (Hospitalization)
  Sender: FDA-Public Use
  Company Number: IE-TEVA-228650ISR

PATIENT
  Sex: Male

DRUGS (14)
  1. PREDNISOLONE [Suspect]
     Indication: PROSTATE CANCER
     Route: 048
     Dates: start: 20080922, end: 20090112
  2. ABIRATERONE ACETATE OR PLACEBO [Suspect]
     Indication: PROSTATE CANCER
     Route: 048
     Dates: start: 20080922, end: 20090112
  3. PARACETAMOL [Concomitant]
     Indication: PAIN
     Route: 048
     Dates: start: 20081020, end: 20081130
  4. BISOPROLOL FUMARATE [Concomitant]
     Indication: HYPERTENSION
     Route: 048
     Dates: start: 20081117, end: 20090209
  5. METOCLOPRAMIDE HYDROCHLORIDE [Concomitant]
     Indication: NAUSEA
     Route: 048
     Dates: start: 20081117
  6. AMLODIPINE [Concomitant]
     Indication: HYPERTENSION
     Route: 048
     Dates: start: 20081117
  7. ZOLEDRONIC ACID [Concomitant]
     Indication: BONE DENSITY DECREASED
     Route: 042
     Dates: start: 20081006
  8. ESOMEPRAZOLE [Concomitant]
     Indication: GASTRITIS
     Route: 048
     Dates: start: 20081117
  9. CODEINE PHOSPHATE W/PARACETAMOL [Concomitant]
     Indication: ANALGESIC THERAPY
     Dates: start: 20081130, end: 20090112
  10. OXYCODONE HYDROCHLORIDE [Concomitant]
     Indication: CANCER PAIN
     Route: 048
     Dates: start: 20081201
  11. MAGNESIUM SULFATE [Concomitant]
     Indication: CONSTIPATION
     Route: 048
     Dates: start: 20081006, end: 20081130
  12. PANADEINE CO [Concomitant]
     Indication: ANALGESIC THERAPY
     Route: 048
     Dates: start: 20081130
  13. METOCLOPRAMIDE HYDROCHLORIDE [Concomitant]
  14. GLUCOSAMINE [Concomitant]
     Indication: ARTHROPATHY
     Route: 048
     Dates: start: 20080901

REACTIONS (1)
  - DIZZINESS [None]
